FAERS Safety Report 8902098 (Version 1)
Quarter: 2012Q4

REPORT INFORMATION
  Report Type: 
  Country: CA (occurrence: CA)
  Receive Date: 20121112
  Receipt Date: 20121112
  Transmission Date: 20130627
  Serious: Yes (Death)
  Sender: FDA-Public Use
  Company Number: CA-ELI_LILLY_AND_COMPANY-CA201211001393

PATIENT
  Age: 86 Year
  Sex: Female

DRUGS (9)
  1. FORTEO [Suspect]
     Indication: OSTEOPOROSIS
     Dosage: 20 ug, qd
     Route: 058
     Dates: start: 20110809
  2. PLAVIX [Concomitant]
  3. PANTOPRAZOLE [Concomitant]
  4. TOLOXIN                            /00017701/ [Concomitant]
  5. BISOPROLOL [Concomitant]
  6. IRON SULFATE [Concomitant]
  7. D-TABS [Concomitant]
  8. TYLENOL                                 /SCH/ [Concomitant]
  9. OXYCODONE [Concomitant]

REACTIONS (1)
  - Death [Fatal]
